FAERS Safety Report 13981090 (Version 1)
Quarter: 2017Q3

REPORT INFORMATION
  Report Type: Spontaneous
  Country: US (occurrence: None)
  Receive Date: 20170915
  Receipt Date: 20170915
  Transmission Date: 20171128
  Serious: Yes (Hospitalization)
  Sender: FDA-Public Use
  Company Number: None

PATIENT
  Age: 61 Year
  Sex: Female

DRUGS (9)
  1. POLYETHYLENE GYLCOL 3350 [Concomitant]
     Active Substance: POLYETHYLENE GLYCOL 3350
  2. RIVAROXABAN [Concomitant]
     Active Substance: RIVAROXABAN
  3. ETOPOSIDE. [Concomitant]
     Active Substance: ETOPOSIDE
  4. BLEOMYCIN [Suspect]
     Active Substance: BLEOMYCIN SULFATE
     Indication: NEOPLASM MALIGNANT
     Route: 042
     Dates: start: 20170717, end: 20170829
  5. FUROSEMIDE. [Concomitant]
     Active Substance: FUROSEMIDE
  6. VITAMIN D [Concomitant]
     Active Substance: CHOLECALCIFEROL
  7. LABETALOL [Concomitant]
     Active Substance: LABETALOL\LABETALOL HYDROCHLORIDE
  8. SENNA [Concomitant]
     Active Substance: SENNA LEAF\SENNOSIDES\SENNOSIDES A AND B
  9. CISPLATIN. [Concomitant]
     Active Substance: CISPLATIN

REACTIONS (6)
  - Traumatic lung injury [None]
  - Respiratory distress [None]
  - Pulmonary embolism [None]
  - Hypoxia [None]
  - Polyuria [None]
  - Tachypnoea [None]

NARRATIVE: CASE EVENT DATE: 20170829
